FAERS Safety Report 17435509 (Version 1)
Quarter: 2020Q1

REPORT INFORMATION
  Report Type: Spontaneous
  Country: US (occurrence: US)
  Receive Date: 20200219
  Receipt Date: 20200219
  Transmission Date: 20200409
  Serious: Yes (Death, Hospitalization)
  Sender: FDA-Public Use
  Company Number: US-MYLANLABS-2020M1019040

PATIENT
  Age: 46 Year
  Sex: Male

DRUGS (1)
  1. NOREPINEPHRINE. [Suspect]
     Active Substance: NOREPINEPHRINE
     Indication: CARDIAC ARREST
     Dosage: UNK
     Route: 065

REACTIONS (1)
  - Drug ineffective [Fatal]
